FAERS Safety Report 5903351-4 (Version None)
Quarter: 2008Q3

REPORT INFORMATION
  Report Type: 
  Country: None (occurrence: None)
  Receive Date: 20080926
  Receipt Date: 20080915
  Transmission Date: 20090109
  Serious: Yes (Hospitalization)
  Sender: FDA-Public Use
  Company Number: 1-16642414

PATIENT
  Age: 46 Year
  Sex: Female

DRUGS (8)
  1. FLUCONAZOLE [Suspect]
     Dosage: 200 MG DAILY, ORAL
     Route: 048
  2. CITALOPRAM HYDROBROMIDE [Suspect]
     Indication: DEPRESSION
     Dosage: 20 MG DAILY, ORAL
     Route: 048
  3. DAPSONE [Concomitant]
  4. ACYCLOVIR SODIUM [Concomitant]
  5. ESOMEPRAZOLE MAGNESIUM [Concomitant]
  6. DEXAMETHASONE [Concomitant]
  7. ZOLPIDEM [Concomitant]
  8. LOSARTAN/HYDROCHLOROTHIAZIDE [Concomitant]

REACTIONS (11)
  - AMNESIA [None]
  - AREFLEXIA [None]
  - CONVULSION [None]
  - DELIRIUM [None]
  - DEPRESSION [None]
  - DRUG INTERACTION [None]
  - DRUG TOXICITY [None]
  - PERSEVERATION [None]
  - PSYCHOMOTOR RETARDATION [None]
  - SEROTONIN SYNDROME [None]
  - STEM CELL TRANSPLANT [None]
